FAERS Safety Report 7904091-2 (Version None)
Quarter: 2011Q4

REPORT INFORMATION
  Report Type: 
  Country: None (occurrence: None)
  Receive Date: 20111109
  Receipt Date: 20111012
  Transmission Date: 20120403
  Serious: Yes (Hospitalization)
  Sender: FDA-Public Use
  Company Number: JP-MERCK-1109USA01679

PATIENT
  Age: 72 Year
  Sex: Female
  Weight: 45 kg

DRUGS (17)
  1. FOSAMAX [Suspect]
     Indication: OSTEOPOROSIS
     Route: 048
     Dates: start: 20090813, end: 20091106
  2. NORVASC [Concomitant]
     Indication: HYPERTENSION
     Route: 048
     Dates: start: 20090604
  3. PREDNISOLONE [Concomitant]
     Indication: CRYOGLOBULINAEMIA
     Route: 048
     Dates: start: 20090630
  4. FERROUS SULFATE TAB [Concomitant]
     Indication: ANAEMIA
     Route: 048
     Dates: start: 20090806
  5. REBETOL [Concomitant]
     Indication: HEPATITIS C
     Route: 048
     Dates: start: 20090810
  6. SELBEX [Concomitant]
     Indication: GASTRITIS
     Route: 048
     Dates: start: 20090630
  7. ENALAPRIL MALEATE [Concomitant]
     Indication: HYPERTENSION
     Route: 048
     Dates: start: 20090604
  8. VANCOMIN [Concomitant]
     Indication: CHRONIC HEPATITIS
     Route: 065
     Dates: start: 20090620
  9. URSO 250 [Concomitant]
     Indication: CHRONIC HEPATITIS
     Route: 048
     Dates: start: 20090604
  10. DIOVAN [Concomitant]
     Indication: HYPERTENSION
     Route: 048
     Dates: start: 20090609
  11. REBETOL [Concomitant]
     Indication: CRYOGLOBULINAEMIA
     Route: 048
     Dates: start: 20090810
  12. MUCODYNE [Concomitant]
     Route: 048
  13. RABEPRAZOLE SODIUM [Concomitant]
     Route: 048
  14. ADALAT [Concomitant]
     Indication: HYPERTENSION
     Route: 048
     Dates: start: 20090616
  15. PEG-INTRON [Concomitant]
     Indication: HEPATITIS C
     Route: 058
  16. PEG-INTRON [Concomitant]
     Indication: CRYOGLOBULINAEMIA
     Route: 058
  17. OLMESARTAN MEDOXOMIL [Concomitant]
     Route: 048

REACTIONS (1)
  - OSTEOMYELITIS [None]
